FAERS Safety Report 9219580 (Version 1)
Quarter: 2013Q2

REPORT INFORMATION
  Report Type: Spontaneous
  Country: PE (occurrence: PE)
  Receive Date: 20130409
  Receipt Date: 20130409
  Transmission Date: 20140414
  Serious: Yes (Death, Life-Threatening, Hospitalization, Disabling)
  Sender: FDA-Public Use
  Company Number: PE-ROCHE-1206869

PATIENT
  Age: 82 Year
  Sex: Male

DRUGS (2)
  1. ACTILYSE [Suspect]
     Indication: ISCHAEMIC STROKE
     Route: 042
     Dates: start: 20100616, end: 20100616
  2. CAPTOPRIL [Concomitant]
     Indication: HYPOTENSION
     Route: 048

REACTIONS (3)
  - Pneumonia [Fatal]
  - Hemiplegia [Unknown]
  - Hypotension [Recovered/Resolved]
